FAERS Safety Report 16123714 (Version 1)
Quarter: 2019Q1

REPORT INFORMATION
  Report Type: Spontaneous
  Country: US (occurrence: US)
  Receive Date: 20190327
  Receipt Date: 20190327
  Transmission Date: 20190418
  Serious: Yes (Other)
  Sender: FDA-Public Use
  Company Number: US-BAYER-2019-056216

PATIENT
  Age: 71 Year
  Sex: Male
  Weight: 99.77 kg

DRUGS (1)
  1. ALEVE [Suspect]
     Active Substance: NAPROXEN SODIUM
     Indication: PAIN
     Dosage: 2 DF, QD
     Dates: start: 2002

REACTIONS (5)
  - Colon injury [None]
  - Myocardial infarction [Recovered/Resolved]
  - Incorrect product administration duration [None]
  - Myocardial infarction [None]
  - Confusional state [Not Recovered/Not Resolved]

NARRATIVE: CASE EVENT DATE: 2002
